FAERS Safety Report 24441502 (Version 2)
Quarter: 2024Q4

REPORT INFORMATION
  Report Type: Spontaneous
  Country: ES (occurrence: ES)
  Receive Date: 20241016
  Receipt Date: 20241017
  Transmission Date: 20250115
  Serious: No
  Sender: ROCHE
  Company Number: ES-ROCHE-3498081

PATIENT
  Age: 66 Year
  Sex: Male

DRUGS (5)
  1. EMICIZUMAB [Suspect]
     Active Substance: EMICIZUMAB
     Indication: Acquired haemophilia
     Dosage: 3 MG/KG
     Route: 058
  2. EMICIZUMAB [Suspect]
     Active Substance: EMICIZUMAB
     Dosage: 4.3 MG/KG
     Route: 058
  3. PREDNISONE [Concomitant]
     Active Substance: PREDNISONE
  4. METHYLPREDNISOLONE [Concomitant]
     Active Substance: METHYLPREDNISOLONE
     Route: 042
  5. HYDROCORTISONE [Concomitant]
     Active Substance: HYDROCORTISONE
     Route: 042

REACTIONS (2)
  - Off label use [Unknown]
  - No adverse event [Unknown]
